FAERS Safety Report 12451857 (Version 1)
Quarter: 2016Q2

REPORT INFORMATION
  Report Type: Spontaneous
  Country: US (occurrence: US)
  Receive Date: 20160609
  Receipt Date: 20160609
  Transmission Date: 20160815
  Serious: No
  Sender: FDA-Public Use
  Company Number: US-BAYER-2016-111013

PATIENT
  Sex: Female

DRUGS (4)
  1. ALEVE [Suspect]
     Active Substance: NAPROXEN SODIUM
     Dosage: UNK UNK, QD
  2. ALEVE [Suspect]
     Active Substance: NAPROXEN SODIUM
     Dosage: UNK UNK, QD
  3. H2 BLOCKER [Concomitant]
  4. ANTIACID [Concomitant]

REACTIONS (4)
  - Product use issue [None]
  - Abdominal discomfort [None]
  - Dyspepsia [None]
  - Diarrhoea [None]
